FAERS Safety Report 9048743 (Version 1)
Quarter: 2013Q2

REPORT INFORMATION
  Report Type: Spontaneous
  Country: US (occurrence: None)
  Receive Date: 20130130
  Receipt Date: 20130130
  Transmission Date: 20140414
  Serious: Yes (Hospitalization)
  Sender: FDA-Public Use
  Company Number: None

PATIENT
  Age: 3 Year
  Sex: Male

DRUGS (1)
  1. CARBAGLU (CARGLUMIC ACID) [Suspect]
     Indication: AMINO ACID METABOLISM DISORDER
     Dosage: 1 EVERY DAY
     Route: 048
     Dates: start: 20110324

REACTIONS (3)
  - Hyperammonaemia [None]
  - Vomiting [None]
  - Cough [None]
